FAERS Safety Report 17548083 (Version 1)
Quarter: 2020Q1

REPORT INFORMATION
  Report Type: Spontaneous
  Country: US (occurrence: US)
  Receive Date: 20200317
  Receipt Date: 20200317
  Transmission Date: 20200409
  Serious: Yes (Other)
  Sender: FDA-Public Use
  Company Number: US-SPECGX-T202000555

PATIENT
  Sex: Female

DRUGS (1)
  1. MORPHINE [Suspect]
     Active Substance: MORPHINE
     Indication: PRODUCT USED FOR UNKNOWN INDICATION
     Dosage: 30 MILLIGRAM, (2-3 TIMES A DAY)
     Route: 065
     Dates: start: 2003, end: 2018

REACTIONS (7)
  - Drug withdrawal syndrome [Unknown]
  - Memory impairment [Unknown]
  - Intestinal obstruction [Unknown]
  - Vomiting [Unknown]
  - Intestinal resection [Unknown]
  - Coma [Unknown]
  - Chronic obstructive pulmonary disease [Unknown]

NARRATIVE: CASE EVENT DATE: 2018
